FAERS Safety Report 26207091 (Version 1)
Quarter: 2025Q4

REPORT INFORMATION
  Report Type: Spontaneous
  Country: IR (occurrence: IR)
  Receive Date: 20251229
  Receipt Date: 20251229
  Transmission Date: 20260118
  Serious: Yes (Death)
  Sender: RANBAXY
  Company Number: IR-SUN PHARMACEUTICAL INDUSTRIES LTD-2025RR-543565

PATIENT
  Age: 45 Year
  Sex: Female

DRUGS (4)
  1. AMPICILLIN SODIUM\SULBACTAM SODIUM [Suspect]
     Active Substance: AMPICILLIN SODIUM\SULBACTAM SODIUM
     Indication: Acinetobacter bacteraemia
     Dosage: 3 GRAM, QID
     Route: 042
  2. NOREPINEPHRINE BITARTRATE [Suspect]
     Active Substance: NOREPINEPHRINE BITARTRATE
     Indication: Hypotension
     Dosage: STARTED AT 0.1 UG/KG/MIN AND TITRATED TO 0.5 UG/KG/MIN BY DAY 9
     Route: 065
  3. COLISTIN [Suspect]
     Active Substance: COLISTIN
     Indication: Acinetobacter bacteraemia
     Dosage: UNK
     Route: 042
  4. COLISTIN [Suspect]
     Active Substance: COLISTIN
     Dosage: UNK
     Route: 037

REACTIONS (2)
  - Disease progression [Fatal]
  - Drug ineffective [Fatal]
